FAERS Safety Report 16883805 (Version 1)
Quarter: 2019Q4

REPORT INFORMATION
  Report Type: Spontaneous
  Country: US (occurrence: US)
  Receive Date: 20190807
  Receipt Date: 20190807
  Transmission Date: 20200122
  Serious: Yes (Life-Threatening, Hospitalization, Disabling, Other)
  Sender: FDA-Public Use
  Company Number: None

PATIENT

DRUGS (1)
  1. RISPERIDONE. [Suspect]
     Active Substance: RISPERIDONE
     Indication: PRODUCT USED FOR UNKNOWN INDICATION
     Dosage: ?          OTHER FREQUENCY:ONE OR TWICE DAILY;?
     Route: 048
     Dates: start: 2002, end: 201608

REACTIONS (3)
  - Sperm concentration zero [None]
  - Thinking abnormal [None]
  - Headache [None]

NARRATIVE: CASE EVENT DATE: 20160623
